FAERS Safety Report 9270262 (Version 1)
Quarter: 2013Q2

REPORT INFORMATION
  Report Type: Spontaneous
  Country: BR (occurrence: BR)
  Receive Date: 20130503
  Receipt Date: 20130503
  Transmission Date: 20140414
  Serious: Yes (Other)
  Sender: FDA-Public Use
  Company Number: BR-ABBOTT-13X-020-1082378-00

PATIENT
  Sex: Female

DRUGS (3)
  1. DEPAKENE [Suspect]
     Indication: ENCEPHALITIS
     Route: 048
     Dates: start: 2001
  2. DEPAKENE [Suspect]
     Indication: CONVULSION
  3. TEGRETOL [Suspect]
     Indication: CONVULSION
     Route: 048

REACTIONS (11)
  - Hepatic cirrhosis [Unknown]
  - Convulsion [Unknown]
  - Hormone level abnormal [Not Recovered/Not Resolved]
  - Hair growth abnormal [Not Recovered/Not Resolved]
  - Blister [Not Recovered/Not Resolved]
  - Generalised oedema [Not Recovered/Not Resolved]
  - Weight increased [Not Recovered/Not Resolved]
  - Weight decreased [Unknown]
  - Nausea [Not Recovered/Not Resolved]
  - Weight increased [Unknown]
  - Drug level increased [Unknown]
